FAERS Safety Report 9639674 (Version 1)
Quarter: 2013Q4

REPORT INFORMATION
  Report Type: Spontaneous
  Country: US (occurrence: US)
  Receive Date: 20131023
  Receipt Date: 20131023
  Transmission Date: 20140711
  Serious: No
  Sender: FDA-Public Use
  Company Number: US-009507513-1310USA007449

PATIENT
  Sex: Male

DRUGS (1)
  1. COSOPT [Suspect]
     Dosage: UNK
     Route: 047
     Dates: start: 201306

REACTIONS (4)
  - Drug dose omission [Unknown]
  - Product quality issue [Unknown]
  - Inappropriate schedule of drug administration [Unknown]
  - No adverse event [Unknown]
